FAERS Safety Report 9613349 (Version 2)
Quarter: 2013Q4

REPORT INFORMATION
  Report Type: Spontaneous
  Country: JP (occurrence: None)
  Receive Date: 20131008
  Receipt Date: 20131023
  Transmission Date: 20140711
  Serious: Yes (Death, Hospitalization, Other)
  Sender: FDA-Public Use
  Company Number: CO-OR-JP-2013-110

PATIENT
  Age: 81 Year
  Sex: Male
  Weight: 73.5 kg

DRUGS (5)
  1. PREDNISOLONE [Suspect]
     Indication: LIGHT CHAIN DISEASE
  2. PREDNISOLONE [Suspect]
     Indication: PLASMA CELL MYELOMA
  3. DEXAMETHASONE [Suspect]
     Indication: LIGHT CHAIN DISEASE
  4. DEXAMETHASONE [Suspect]
     Indication: PLASMA CELL MYELOMA
  5. MELPHALAN (MELPHALAN) [Concomitant]

REACTIONS (7)
  - Renal impairment [None]
  - Condition aggravated [None]
  - Haemodialysis [None]
  - Gastrointestinal haemorrhage [None]
  - Biliary tract infection [None]
  - Cholangitis [None]
  - Pancreatitis [None]
